FAERS Safety Report 5748033-7 (Version None)
Quarter: 2008Q2

REPORT INFORMATION
  Report Type: 
  Country: None (occurrence: None)
  Receive Date: 20080523
  Receipt Date: 20080506
  Transmission Date: 20081010
  Serious: No
  Sender: FDA-Public Use
  Company Number: US-JNJFOC-20080204891

PATIENT
  Sex: Male
  Weight: 99.79 kg

DRUGS (3)
  1. INVEGA [Suspect]
     Route: 048
  2. INVEGA [Suspect]
     Route: 048
  3. INVEGA [Suspect]
     Indication: SCHIZOPHRENIA
     Route: 048

REACTIONS (14)
  - ABNORMAL BEHAVIOUR [None]
  - ASTHENIA [None]
  - CHEST DISCOMFORT [None]
  - CHEST PAIN [None]
  - DRUG DOSE OMISSION [None]
  - DYSARTHRIA [None]
  - DYSPNOEA [None]
  - EYE PAIN [None]
  - MENTAL IMPAIRMENT [None]
  - PALPITATIONS [None]
  - RASH GENERALISED [None]
  - REFUSAL OF TREATMENT BY PATIENT [None]
  - SOLILOQUY [None]
  - UNDERDOSE [None]
